FAERS Safety Report 7744423-1 (Version None)
Quarter: 2011Q3

REPORT INFORMATION
  Report Type: 
  Country: None (occurrence: None)
  Receive Date: 20110912
  Receipt Date: 20110907
  Transmission Date: 20111222
  Serious: Yes (Other)
  Sender: FDA-Public Use
  Company Number: DE-AMGEN-DEUSP2011037525

PATIENT
  Age: 60 Year
  Sex: Female

DRUGS (2)
  1. ANTINEOPLASTIC AGENTS [Concomitant]
     Dosage: UNK
     Dates: start: 20110719
  2. NEULASTA [Suspect]
     Indication: CHEMOTHERAPY
     Dosage: 6 MG, UNK
     Dates: start: 20110723

REACTIONS (3)
  - INJECTION SITE PAIN [None]
  - BLOOD COUNT ABNORMAL [None]
  - UNDERDOSE [None]
